FAERS Safety Report 6411930-3 (Version None)
Quarter: 2009Q4

REPORT INFORMATION
  Report Type: 
  Country: None (occurrence: None)
  Receive Date: 20091023
  Receipt Date: 20091013
  Transmission Date: 20100525
  Serious: Yes (Hospitalization, Other)
  Sender: FDA-Public Use
  Company Number: US-JNJFOC-20091004928

PATIENT
  Sex: Female
  Weight: 46.27 kg

DRUGS (9)
  1. REMICADE [Suspect]
     Indication: CROHN'S DISEASE
     Dosage: 2-3 DOSES
     Route: 042
     Dates: start: 20070101, end: 20070101
  2. CRESTOR [Concomitant]
  3. ASACOL [Concomitant]
     Indication: CROHN'S DISEASE
  4. WELCHOL [Concomitant]
  5. PHENERGAN HCL [Concomitant]
  6. LORTAB [Concomitant]
  7. VITAMIN [Concomitant]
  8. CALTRATE WITH VITAMIN D [Concomitant]
  9. PAXIL [Concomitant]
     Indication: MUSCLE SPASMS

REACTIONS (1)
  - OBSTRUCTION [None]
